FAERS Safety Report 10684230 (Version 1)
Quarter: 2014Q4

REPORT INFORMATION
  Report Type: Spontaneous
  Country: BR (occurrence: BR)
  Receive Date: 20141231
  Receipt Date: 20141231
  Transmission Date: 20150529
  Serious: Yes (Other)
  Sender: FDA-Public Use
  Company Number: BR-ROCHE-1515497

PATIENT
  Age: 58 Year
  Sex: Male

DRUGS (1)
  1. LUCENTIS [Suspect]
     Active Substance: RANIBIZUMAB
     Indication: RETINAL VEIN OCCLUSION
     Route: 050

REACTIONS (8)
  - Anterior chamber flare [Unknown]
  - Macular oedema [Unknown]
  - Vision blurred [Unknown]
  - Glaucoma [Unknown]
  - Cystoid macular oedema [Unknown]
  - Visual impairment [Unknown]
  - Blindness transient [Unknown]
  - Visual acuity reduced [Unknown]
